FAERS Safety Report 5616603-2 (Version None)
Quarter: 2008Q1

REPORT INFORMATION
  Report Type: 
  Country: None (occurrence: None)
  Receive Date: 20080206
  Receipt Date: 20080206
  Transmission Date: 20080703
  Serious: No
  Sender: FDA-Public Use
  Company Number: None

PATIENT
  Sex: Female
  Weight: 67.1324 kg

DRUGS (2)
  1. AMBIEN CR [Suspect]
     Indication: INSOMNIA
     Dosage: 1 TABLET  TWICE PER WEEK  PO
     Route: 048
     Dates: start: 20080125, end: 20080127
  2. AMBIEN CR [Suspect]
     Indication: INSOMNIA
     Dosage: 1 TABLET  TWICE PER WEEK  PO
     Route: 048
     Dates: start: 20080203, end: 20080204

REACTIONS (3)
  - GRIP STRENGTH DECREASED [None]
  - MUSCULAR WEAKNESS [None]
  - MYALGIA [None]
